FAERS Safety Report 12105440 (Version 1)
Quarter: 2016Q1

REPORT INFORMATION
  Report Type: Spontaneous
  Country: DE (occurrence: DE)
  Receive Date: 20160223
  Receipt Date: 20160223
  Transmission Date: 20160526
  Serious: Yes (Other)
  Sender: FDA-Public Use
  Company Number: GXKR2016DE000988

PATIENT
  Age: 65 Year
  Sex: Female

DRUGS (1)
  1. LETROHEXAL [Suspect]
     Active Substance: LETROZOLE
     Indication: BREAST CANCER
     Dosage: 2.5 MG, QHS
     Route: 048
     Dates: start: 2012

REACTIONS (1)
  - Osteochondrosis [Unknown]
